FAERS Safety Report 9680746 (Version 2)
Quarter: 2014Q1

REPORT INFORMATION
  Report Type: Spontaneous
  Country: US (occurrence: US)
  Receive Date: 20131111
  Receipt Date: 20140123
  Transmission Date: 20141002
  Serious: Yes (Other)
  Sender: FDA-Public Use
  Company Number: PHEH2013US022903

PATIENT
  Sex: Male

DRUGS (5)
  1. SANDOSTATIN LAR DEPOT [Suspect]
     Indication: CARCINOID TUMOUR
     Dosage: 20 MG
     Dates: start: 2012
  2. SANDOSTATIN LAR DEPOT [Suspect]
     Dosage: 30 MG, EVERY 4 WEEKS
     Dates: start: 20120516
  3. FISH OIL [Concomitant]
     Dosage: UNK UKN, UNK
  4. VITAMIN B [Concomitant]
     Dosage: UNK UKN, UNK
  5. VITAMIN C [Concomitant]
     Dosage: UNK UKN, UNK

REACTIONS (4)
  - Prostate cancer [Unknown]
  - Second primary malignancy [Unknown]
  - Prostatic specific antigen increased [Unknown]
  - Neoplasm progression [Unknown]
